FAERS Safety Report 5513229-6 (Version None)
Quarter: 2007Q4

REPORT INFORMATION
  Report Type: 
  Country: None (occurrence: None)
  Receive Date: 20071112
  Receipt Date: 20071105
  Transmission Date: 20080405
  Serious: Yes (Other)
  Sender: FDA-Public Use
  Company Number: US-SANOFI-SYNTHELABO-A03200706294

PATIENT
  Age: 67 Year
  Sex: Female

DRUGS (10)
  1. AMITRIPTYLINE HCL [Concomitant]
     Dosage: UNK
     Route: 048
  2. PRAVASTATIN [Concomitant]
     Dosage: UNK
     Route: 048
  3. ACIPHEX [Concomitant]
     Dosage: UNK
     Route: 048
  4. TRIAMTERENE [Concomitant]
     Dosage: UNK
     Route: 048
  5. ALTACE [Concomitant]
     Dosage: UNK
     Route: 048
  6. METOPROLOL TARTRATE [Concomitant]
     Dosage: UNK
     Route: 048
  7. ASPIRIN [Concomitant]
     Dosage: UNK
     Route: 048
  8. PLAVIX [Suspect]
     Indication: MYOCARDIAL INFARCTION
     Route: 048
     Dates: start: 20050201
  9. FISH OIL [Concomitant]
     Route: 048
  10. METFORMIN HCL [Concomitant]
     Indication: DIABETES MELLITUS
     Route: 048
     Dates: end: 20070601

REACTIONS (4)
  - ALOPECIA [None]
  - CAROTID ARTERY OCCLUSION [None]
  - HAEMORRHAGIC DIATHESIS [None]
  - WEIGHT DECREASED [None]
